FAERS Safety Report 15482723 (Version 1)
Quarter: 2018Q4

REPORT INFORMATION
  Report Type: Spontaneous
  Country: FR (occurrence: FR)
  Receive Date: 20181010
  Receipt Date: 20181010
  Transmission Date: 20190205
  Serious: Yes (Disabling)
  Sender: FDA-Public Use
  Company Number: FR-PROVELL PHARMACEUTICALS-2055894

PATIENT
  Age: 79 Year
  Sex: Female

DRUGS (4)
  1. PANTOPRAZOLE [Concomitant]
     Active Substance: PANTOPRAZOLE
  2. KARDEGIC [Concomitant]
     Active Substance: ASPIRIN DL-LYSINE
  3. EUTHYROX [Suspect]
     Active Substance: LEVOTHYROXINE SODIUM
  4. EUTHYROX [Suspect]
     Active Substance: LEVOTHYROXINE SODIUM
     Indication: HYPOTHYROIDISM

REACTIONS (3)
  - Limb discomfort [None]
  - Gait inability [None]
  - Product prescribing error [None]

NARRATIVE: CASE EVENT DATE: 201809
